FAERS Safety Report 18242278 (Version 2)
Quarter: 2020Q3

REPORT INFORMATION
  Report Type: Report from Study
  Country: DE (occurrence: DE)
  Receive Date: 20200908
  Receipt Date: 20200916
  Transmission Date: 20201103
  Serious: Yes (Other)
  Sender: FDA-Public Use
  Company Number: DE-MYLANLABS-2020M1077915

PATIENT
  Age: 27 Year
  Sex: Female

DRUGS (18)
  1. LEPONEX [Suspect]
     Active Substance: CLOZAPINE
     Dosage: 450 MG
     Route: 048
     Dates: start: 20021121, end: 20021220
  2. DIPIPERON [Suspect]
     Active Substance: PIPAMPERONE
     Indication: SCHIZOAFFECTIVE DISORDER
     Dosage: 120 MG
     Route: 048
     Dates: start: 20021031, end: 20021118
  3. DIPIPERON [Suspect]
     Active Substance: PIPAMPERONE
     Dosage: 80 MG
     Route: 048
     Dates: start: 20030127, end: 20030129
  4. DIPIPERON [Suspect]
     Active Substance: PIPAMPERONE
     Dosage: 375 MILLIGRAM
     Route: 048
     Dates: start: 20030219
  5. LEPONEX [Suspect]
     Active Substance: CLOZAPINE
     Dosage: 375 MG
     Route: 048
     Dates: start: 20030219
  6. DIPIPERON [Suspect]
     Active Substance: PIPAMPERONE
     Dosage: 120 MG
     Route: 048
     Dates: start: 20030124, end: 20030126
  7. DIPIPERON [Suspect]
     Active Substance: PIPAMPERONE
     Dosage: 375 MILLIGRAM
     Route: 048
     Dates: start: 20021120
  8. HYPNOREX [Suspect]
     Active Substance: LITHIUM CARBONATE
     Dosage: 1000 MG
     Route: 048
     Dates: start: 20030113
  9. DIPIPERON [Suspect]
     Active Substance: PIPAMPERONE
     Dosage: 320 MG
     Route: 048
     Dates: start: 20021119, end: 20030119
  10. LEPONEX [Suspect]
     Active Substance: CLOZAPINE
     Indication: SCHIZOAFFECTIVE DISORDER
     Dosage: 375 MG
     Route: 048
     Dates: end: 20021120
  11. APONAL [Suspect]
     Active Substance: DOXEPIN HYDROCHLORIDE
     Indication: PRODUCT USED FOR UNKNOWN INDICATION
     Dosage: 50 MG
     Route: 048
     Dates: start: 20021111, end: 20030119
  12. APONAL [Suspect]
     Active Substance: DOXEPIN HYDROCHLORIDE
     Dosage: 75 MG
     Route: 048
     Dates: start: 20030120, end: 20030129
  13. LEPONEX [Suspect]
     Active Substance: CLOZAPINE
     Dosage: 400 MG
     Route: 048
     Dates: start: 20021221, end: 20030205
  14. LEPONEX [Suspect]
     Active Substance: CLOZAPINE
     Dosage: 450 MG
     Route: 048
     Dates: start: 20030206, end: 20030218
  15. DIPIPERON [Suspect]
     Active Substance: PIPAMPERONE
     Dosage: 160 MG
     Route: 048
     Dates: start: 20030120, end: 20030123
  16. CIPRAMIL                           /00582602/ [Suspect]
     Active Substance: CITALOPRAM HYDROBROMIDE
     Indication: PRODUCT USED FOR UNKNOWN INDICATION
     Dosage: 20 MG
     Route: 048
     Dates: start: 20021105
  17. APONAL [Suspect]
     Active Substance: DOXEPIN HYDROCHLORIDE
     Dosage: 100 MG
     Route: 048
     Dates: start: 20030130
  18. HYPNOREX [Suspect]
     Active Substance: LITHIUM CARBONATE
     Indication: PRODUCT USED FOR UNKNOWN INDICATION
     Dosage: 1200 MG
     Route: 048
     Dates: end: 20030112

REACTIONS (4)
  - Dyskinesia [Recovered/Resolved]
  - Drug level increased [Unknown]
  - Speech disorder [Recovered/Resolved]
  - Tongue movement disturbance [Recovered/Resolved]

NARRATIVE: CASE EVENT DATE: 20030113
